FAERS Safety Report 8381340-0 (Version None)
Quarter: 2012Q2

REPORT INFORMATION
  Report Type: 
  Country: None (occurrence: None)
  Receive Date: 20120523
  Receipt Date: 20120517
  Transmission Date: 20120825
  Serious: Yes (Hospitalization, Other)
  Sender: FDA-Public Use
  Company Number: US-PFIZER INC-2012120712

PATIENT
  Sex: Female

DRUGS (7)
  1. DILANTIN [Suspect]
     Dosage: 460 MG, 1X/DAY
     Route: 048
     Dates: start: 20120401, end: 20120501
  2. CLONAZEPAM [Concomitant]
     Indication: ANXIETY
     Dosage: UNK
  3. DILANTIN [Suspect]
     Indication: CONVULSION
     Dosage: 360 MG, 1X/DAY
     Route: 048
     Dates: start: 20110601, end: 20120401
  4. CLONAZEPAM [Concomitant]
     Indication: SLEEP DISORDER
  5. DIOVAN [Concomitant]
     Indication: HYPERTENSION
     Dosage: UNK
  6. DILANTIN [Suspect]
     Dosage: 430 MG, 1X/DAY
     Route: 048
     Dates: start: 20120501
  7. ZOLOFT [Concomitant]
     Indication: ANXIETY
     Dosage: UNK

REACTIONS (11)
  - SINUSITIS [None]
  - FATIGUE [None]
  - CONVULSION [None]
  - MALAISE [None]
  - CLUMSINESS [None]
  - LETHARGY [None]
  - LUNG NEOPLASM MALIGNANT [None]
  - INFLUENZA [None]
  - FEELING ABNORMAL [None]
  - ANTICONVULSANT DRUG LEVEL INCREASED [None]
  - KIDNEY INFECTION [None]
